FAERS Safety Report 7512277-4 (Version None)
Quarter: 2011Q2

REPORT INFORMATION
  Report Type: 
  Country: None (occurrence: None)
  Receive Date: 20110531
  Receipt Date: 20110516
  Transmission Date: 20111010
  Serious: Yes (Other)
  Sender: FDA-Public Use
  Company Number: PHHY2011US41539

PATIENT
  Sex: Female

DRUGS (14)
  1. LASIX [Concomitant]
     Dosage: 60 MG
  2. RECLAST [Suspect]
     Dosage: 5 MG
     Route: 042
  3. PRILOSEC [Concomitant]
     Dosage: 20 MG
  4. ASPIRIN [Concomitant]
     Dosage: 81 MG
  5. DIGOXIN [Concomitant]
     Dosage: 25 MG
  6. AMLODIPINE [Concomitant]
     Dosage: 10 MG, UNK
  7. VITAMINS [Concomitant]
  8. SOTALOL HCL [Concomitant]
     Dosage: 120 MG
  9. TOPROL-XL [Concomitant]
     Dosage: 25 MG
  10. CALCIUM WITH VITAMIN D [Concomitant]
  11. KLOR-CON [Concomitant]
  12. PRAVASTATIN [Concomitant]
     Dosage: 200 MG
  13. ZOFRAN [Concomitant]
     Dosage: 1 MG,
  14. LEVOTHYROXINE SODIUM [Concomitant]
     Dosage: 112 MG, UNK

REACTIONS (6)
  - FEELING ABNORMAL [None]
  - INFLUENZA LIKE ILLNESS [None]
  - CHILLS [None]
  - DECREASED APPETITE [None]
  - BLINDNESS [None]
  - EYE DISORDER [None]
